FAERS Safety Report 5455451-3 (Version None)
Quarter: 2007Q3

REPORT INFORMATION
  Report Type: 
  Country: None (occurrence: None)
  Receive Date: 20070918
  Receipt Date: 20070330
  Transmission Date: 20080115
  Serious: No
  Sender: FDA-Public Use
  Company Number: US-ASTRAZENECA-2006UW21468

PATIENT
  Sex: Female
  Weight: 78.2 kg

DRUGS (2)
  1. SEROQUEL [Suspect]
     Indication: DEPRESSION
     Route: 048
  2. GEODON [Concomitant]

REACTIONS (2)
  - HYPERGLYCAEMIA [None]
  - ILL-DEFINED DISORDER [None]
